FAERS Safety Report 5062064-4 (Version None)
Quarter: 2006Q3

REPORT INFORMATION
  Report Type: 
  Country: None (occurrence: None)
  Receive Date: 20060720
  Receipt Date: 20060720
  Transmission Date: 20061208
  Serious: Yes (Hospitalization)
  Sender: FDA-Public Use
  Company Number: None

PATIENT
  Age: 83 Year
  Sex: Male
  Weight: 89 kg

DRUGS (9)
  1. DICLOFENAC SODIUM [Suspect]
     Indication: OSTEOARTHRITIS
     Dates: end: 20060517
  2. LISINOPRIL [Concomitant]
  3. GEMFIBROZIL [Concomitant]
  4. HYDROCHLOROTHIAZIDE [Concomitant]
  5. LOVASTATIN [Concomitant]
  6. OXYBUTYNIN CHLORIDE [Concomitant]
  7. RANITIDINE HCL [Concomitant]
  8. TERAZOSIN HCL [Concomitant]
  9. SYNTHROID [Concomitant]

REACTIONS (2)
  - ANAEMIA [None]
  - MELAENA [None]
